FAERS Safety Report 5317483-5 (Version None)
Quarter: 2007Q2

REPORT INFORMATION
  Report Type: 
  Country: None (occurrence: None)
  Receive Date: 20070507
  Receipt Date: 20070427
  Transmission Date: 20071010
  Serious: Yes (Death, Hospitalization)
  Sender: FDA-Public Use
  Company Number: JP-BRISTOL-MYERS SQUIBB COMPANY-13769625

PATIENT
  Age: 75 Year
  Sex: Female

DRUGS (4)
  1. ENDOXAN [Suspect]
     Indication: INTERSTITIAL LUNG DISEASE
     Route: 048
  2. PREDONINE [Suspect]
     Indication: INTERSTITIAL LUNG DISEASE
     Route: 048
  3. GRANULOCYTE CSF [Suspect]
     Indication: NEUTROPHIL COUNT DECREASED
  4. GANCICLOVIR [Suspect]
     Indication: NEUTROPHIL COUNT DECREASED
     Dates: start: 20060101

REACTIONS (7)
  - CELLULITIS [None]
  - CHOLANGITIS SCLEROSING [None]
  - HEPATIC ARTERY ANEURYSM [None]
  - HEPATIC FAILURE [None]
  - NEUTROPHIL COUNT DECREASED [None]
  - PLATELET COUNT DECREASED [None]
  - SEPTIC SHOCK [None]
